FAERS Safety Report 18754329 (Version 1)
Quarter: 2021Q1

REPORT INFORMATION
  Report Type: Spontaneous
  Country: RU (occurrence: RU)
  Receive Date: 20210119
  Receipt Date: 20210119
  Transmission Date: 20210419
  Serious: Yes (Death, Other)
  Sender: FDA-Public Use
  Company Number: RU-JNJFOC-20210122690

PATIENT
  Age: 90 Year
  Sex: Female

DRUGS (1)
  1. TRAMADOL HYDROCHLORIDE. [Suspect]
     Active Substance: TRAMADOL HYDROCHLORIDE
     Indication: PROCEDURAL PAIN
     Dosage: 700 MILLIGRAM
     Route: 065
     Dates: start: 20201023, end: 20201023

REACTIONS (3)
  - Cardiac arrest [Fatal]
  - Sopor [Fatal]
  - Overdose [Fatal]

NARRATIVE: CASE EVENT DATE: 20201023
